FAERS Safety Report 10415485 (Version 1)
Quarter: 2014Q2

REPORT INFORMATION
  Report Type: Spontaneous
  Country: US (occurrence: None)
  Receive Date: 20140604
  Receipt Date: 20140604
  Transmission Date: 20141212
  Serious: No
  Sender: FDA-Public Use
  Company Number: 163-POMAL-14022978

PATIENT
  Age: 65 Year
  Sex: Female
  Weight: 67.1 kg

DRUGS (2)
  1. POMALYST (POMALIDOMIDE) (4 MILLIGRAM, CAPSULES) [Suspect]
     Indication: PLASMA CELL MYELOMA
     Route: 048
     Dates: start: 201305
  2. DEXAMETHASONE [Concomitant]

REACTIONS (4)
  - Swelling face [None]
  - Tooth infection [None]
  - Drug dose omission [None]
  - Cough [None]
